FAERS Safety Report 16973619 (Version 3)
Quarter: 2020Q1

REPORT INFORMATION
  Report Type: Spontaneous
  Country: US (occurrence: US)
  Receive Date: 20191030
  Receipt Date: 20200127
  Transmission Date: 20200409
  Serious: No
  Sender: FDA-Public Use
  Company Number: US-PFIZER INC-2019470188

PATIENT
  Age: 50 Year
  Sex: Male

DRUGS (1)
  1. LYRICA [Suspect]
     Active Substance: PREGABALIN
     Indication: PAIN
     Dosage: 100 MG, 3X/DAY (AS NEEDED)
     Route: 048

REACTIONS (3)
  - Mental disorder [Unknown]
  - Fatigue [Unknown]
  - Depression [Unknown]
